FAERS Safety Report 23742439 (Version 1)
Quarter: 2024Q2

REPORT INFORMATION
  Report Type: Spontaneous
  Country: GB (occurrence: GB)
  Receive Date: 20240415
  Receipt Date: 20240415
  Transmission Date: 20240716
  Serious: Yes (Death, Life-Threatening, Hospitalization, Disabling, Congenital Anomaly, Other)
  Sender: FDA-Public Use
  Company Number: DE-AstraZeneca-2021A577685

PATIENT
  Age: 27 Year
  Sex: Female

DRUGS (2)
  1. OMEPRAZOLE [Suspect]
     Active Substance: OMEPRAZOLE
     Indication: Renal failure
     Dosage: UNK
     Route: 048
  2. TACROLIMUS [Suspect]
     Active Substance: TACROLIMUS
     Indication: Kidney transplant rejection
     Dosage: 5MG AS IV BOLUS DOSE;
     Route: 040

REACTIONS (8)
  - Drug interaction [Fatal]
  - Blood magnesium decreased [Fatal]
  - Renal impairment [Fatal]
  - Blood calcium decreased [Fatal]
  - Circulatory collapse [Fatal]
  - Brain oedema [Fatal]
  - Acidosis [Fatal]
  - Product use in unapproved indication [Fatal]

NARRATIVE: CASE EVENT DATE: 20161001
